FAERS Safety Report 18647290 (Version 1)
Quarter: 2020Q4

REPORT INFORMATION
  Report Type: Spontaneous
  Country: MY (occurrence: MY)
  Receive Date: 20201222
  Receipt Date: 20201222
  Transmission Date: 20210114
  Serious: Yes (Other)
  Sender: FDA-Public Use
  Company Number: MY-JNJFOC-20201231790

PATIENT
  Age: 60 Year
  Sex: Female

DRUGS (1)
  1. ULTRACET [Suspect]
     Active Substance: ACETAMINOPHEN\TRAMADOL HYDROCHLORIDE
     Indication: PRODUCT USED FOR UNKNOWN INDICATION
     Route: 048

REACTIONS (2)
  - Chills [Recovered/Resolved]
  - Unresponsive to stimuli [Recovered/Resolved]
